FAERS Safety Report 7028780-X (Version None)
Quarter: 2010Q4

REPORT INFORMATION
  Report Type: 
  Country: None (occurrence: None)
  Receive Date: 20101004
  Receipt Date: 20101004
  Transmission Date: 20110411
  Serious: Yes (Other)
  Sender: FDA-Public Use
  Company Number: None

PATIENT
  Age: 48 Year
  Sex: Female
  Weight: 67.1324 kg

DRUGS (1)
  1. BOTOX [Suspect]

REACTIONS (5)
  - ABASIA [None]
  - BALANCE DISORDER [None]
  - GAIT DISTURBANCE [None]
  - HEADACHE [None]
  - VERTIGO [None]
